FAERS Safety Report 9490387 (Version 2)
Quarter: 2013Q3

REPORT INFORMATION
  Report Type: Spontaneous
  Country: NO (occurrence: NO)
  Receive Date: 20130830
  Receipt Date: 20130830
  Transmission Date: 20140515
  Serious: Yes (Hospitalization, Disabling, Other)
  Sender: FDA-Public Use
  Company Number: NO-ROCHE-800352

PATIENT
  Age: 46 Year
  Sex: Male

DRUGS (6)
  1. MABTHERA [Suspect]
     Indication: RHEUMATOID ARTHRITIS
     Route: 042
     Dates: start: 20060913, end: 20100628
  2. MABTHERA [Suspect]
     Dosage: LAST TREATMENT OF MABTHERA : JUNE 2010
     Route: 042
  3. METHOTREXATE [Concomitant]
     Route: 065
  4. FOLIC ACID [Concomitant]
     Route: 065
  5. MODIFENAC [Concomitant]
     Route: 065
  6. OMEPRAZOLE [Concomitant]
     Route: 065

REACTIONS (3)
  - Visual field defect [Unknown]
  - Visual field defect [Not Recovered/Not Resolved]
  - Intraocular pressure increased [Unknown]
